FAERS Safety Report 10571044 (Version 1)
Quarter: 2014Q4

REPORT INFORMATION
  Report Type: Spontaneous
  Country: US (occurrence: US)
  Receive Date: 20141107
  Receipt Date: 20141107
  Transmission Date: 20150529
  Serious: Yes (Death)
  Sender: FDA-Public Use
  Company Number: US-ACTELION-A-US2014-107807

PATIENT
  Age: 45 Year
  Sex: Female

DRUGS (11)
  1. SINGULAIR [Concomitant]
     Active Substance: MONTELUKAST SODIUM
  2. REVATIO [Concomitant]
     Active Substance: SILDENAFIL CITRATE
  3. TORSEMIDE. [Concomitant]
     Active Substance: TORSEMIDE
  4. PROTONIX [Concomitant]
     Active Substance: PANTOPRAZOLE SODIUM
  5. COUMADIN [Concomitant]
     Active Substance: WARFARIN SODIUM
  6. DIGOXIN. [Concomitant]
     Active Substance: DIGOXIN
  7. ASPIRIN. [Concomitant]
     Active Substance: ASPIRIN
  8. VENTAVIS [Suspect]
     Active Substance: ILOPROST
     Indication: PULMONARY HYPERTENSION
     Dosage: UNK, QID
     Route: 055
     Dates: start: 20111021
  9. LETAIRIS [Concomitant]
     Active Substance: AMBRISENTAN
  10. SPIRONOLACTONE. [Concomitant]
     Active Substance: SPIRONOLACTONE
  11. POTASSIUM [Concomitant]
     Active Substance: POTASSIUM

REACTIONS (1)
  - Death [Fatal]
